FAERS Safety Report 4807145-2 (Version None)
Quarter: 2005Q4

REPORT INFORMATION
  Report Type: 
  Country: None (occurrence: None)
  Receive Date: 20051020
  Receipt Date: 20051004
  Transmission Date: 20060501
  Serious: Yes (Hospitalization)
  Sender: FDA-Public Use
  Company Number: PAR_0374_2005

PATIENT
  Age: 83 Year
  Sex: Male

DRUGS (8)
  1. VERAPAMIL [Suspect]
     Indication: SICK SINUS SYNDROME
     Dosage: 120 MG QDAY
  2. VERAPAMIL [Suspect]
     Indication: TACHYARRHYTHMIA
     Dosage: 120 MG QDAY
  3. COLCHICINE [Suspect]
     Indication: GOUT
     Dosage: 1 MG QDAY
  4. FUROSEMIDE [Concomitant]
  5. ACETYLSALICYLIC ACID SRT [Concomitant]
  6. AMBROXOL [Concomitant]
  7. THEOPHYLLINE [Concomitant]
  8. DICLOFENAC [Concomitant]

REACTIONS (4)
  - BLOOD CREATINE PHOSPHOKINASE INCREASED [None]
  - DRUG INTERACTION [None]
  - GUILLAIN-BARRE SYNDROME [None]
  - QUADRIPLEGIA [None]
